FAERS Safety Report 13645147 (Version 1)
Quarter: 2017Q2

REPORT INFORMATION
  Report Type: Spontaneous
  Country: US (occurrence: US)
  Receive Date: 20170612
  Receipt Date: 20170612
  Transmission Date: 20170830
  Serious: No
  Sender: FDA-Public Use
  Company Number: US-ROCHE-1414546

PATIENT
  Age: 74 Year
  Sex: Female
  Weight: 66.28 kg

DRUGS (1)
  1. XELODA [Suspect]
     Active Substance: CAPECITABINE
     Indication: BREAST CANCER
     Dosage: 3 TABLETS
     Route: 048
     Dates: start: 20140325, end: 20140419

REACTIONS (3)
  - Skin exfoliation [Unknown]
  - Nausea [Unknown]
  - Erythema [Unknown]

NARRATIVE: CASE EVENT DATE: 20140419
